FAERS Safety Report 9140756 (Version 2)
Quarter: 2013Q2

REPORT INFORMATION
  Report Type: Spontaneous
  Country: US (occurrence: US)
  Receive Date: 20130305
  Receipt Date: 20130402
  Transmission Date: 20140414
  Serious: Yes (Hospitalization, Other)
  Sender: FDA-Public Use
  Company Number: US-AMGEN-USASP2013014972

PATIENT
  Age: 37 Year
  Sex: Female
  Weight: 91.16 kg

DRUGS (10)
  1. ENBREL [Suspect]
     Indication: PSORIASIS
     Dosage: 50 MG, QWK
     Dates: start: 20120701, end: 201212
  2. ENBREL [Suspect]
     Indication: RHEUMATOID ARTHRITIS
  3. METHOTREXATE [Concomitant]
     Dosage: 8 MG, QWK  (8-2.5 MG)
     Dates: start: 2010
  4. METHOTREXATE [Concomitant]
  5. RHEUMATREX                         /00113801/ [Concomitant]
     Dosage: 2.5 MG, UNK
     Route: 048
  6. MTX                                /00113801/ [Concomitant]
     Dosage: 20 MG, QWK
  7. FOLVITE                            /00024201/ [Concomitant]
     Dosage: 1 MG, UNK
     Route: 048
  8. MEGACE [Concomitant]
     Dosage: 40 MG, UNK
     Route: 048
  9. TORADOL [Concomitant]
     Dosage: 10 MG, UNK
     Route: 048
  10. TRAMADOL [Concomitant]
     Dosage: UNK UNK, AS NECESSARY

REACTIONS (21)
  - Vaginal haemorrhage [Recovered/Resolved]
  - Pruritus [Not Recovered/Not Resolved]
  - Dry skin [Not Recovered/Not Resolved]
  - Malaise [Unknown]
  - Fatigue [Unknown]
  - Oedema peripheral [Unknown]
  - Arthralgia [Unknown]
  - Joint swelling [Unknown]
  - Insomnia [Unknown]
  - Tenderness [Unknown]
  - Hypokinesia [Unknown]
  - Musculoskeletal stiffness [Unknown]
  - Joint stiffness [Unknown]
  - Hypoaesthesia [Unknown]
  - Sleep disorder [Unknown]
  - Grip strength decreased [Unknown]
  - Soft tissue inflammation [Unknown]
  - Dysmenorrhoea [Unknown]
  - Menstruation irregular [Unknown]
  - Gastrooesophageal reflux disease [Unknown]
  - Paraesthesia [Unknown]
